FAERS Safety Report 5080527-2 (Version None)
Quarter: 2006Q3

REPORT INFORMATION
  Report Type: 
  Country: None (occurrence: None)
  Receive Date: 20060807
  Receipt Date: 20060724
  Transmission Date: 20061208
  Serious: Yes (Death)
  Sender: FDA-Public Use
  Company Number: WSDF_00567

PATIENT
  Age: 74 Year
  Sex: Female
  Weight: 58 kg

DRUGS (13)
  1. WINRHO SDF [Suspect]
     Indication: IDIOPATHIC THROMBOCYTOPENIC PURPURA
     Dosage: 2900 M CG ONCE IV
     Route: 042
     Dates: start: 20060720, end: 20060720
  2. SYNTHROID [Concomitant]
  3. TENORMIN [Concomitant]
  4. ZOCOR [Concomitant]
  5. CELEBREX [Concomitant]
  6. FOSAMAX [Concomitant]
  7. NEXIUM [Concomitant]
  8. AMITRIPTYLINE HCL [Concomitant]
  9. ASPIRIN [Concomitant]
  10. ATROVENT [Concomitant]
  11. PREDNISONE [Concomitant]
  12. AMBIEN [Concomitant]
  13. DURICEF [Concomitant]

REACTIONS (1)
  - ANAPHYLACTIC REACTION [None]
